FAERS Safety Report 13522284 (Version 1)
Quarter: 2017Q2

REPORT INFORMATION
  Report Type: Spontaneous
  Country: TW (occurrence: TW)
  Receive Date: 20170508
  Receipt Date: 20170508
  Transmission Date: 20170830
  Serious: Yes (Death, Hospitalization)
  Sender: FDA-Public Use
  Company Number: TW-009507513-1705TWN002430

PATIENT

DRUGS (1)
  1. KEYTRUDA [Suspect]
     Active Substance: PEMBROLIZUMAB
     Indication: NASOPHARYNGEAL CANCER
     Dosage: TWO CYCLES
     Dates: start: 2017, end: 2017

REACTIONS (2)
  - Infection [Fatal]
  - Off label use [Fatal]

NARRATIVE: CASE EVENT DATE: 20170329
